FAERS Safety Report 10028702 (Version 2)
Quarter: 2014Q1

REPORT INFORMATION
  Report Type: Report from Study
  Country: SE (occurrence: SE)
  Receive Date: 20140321
  Receipt Date: 20140321
  Transmission Date: 20141002
  Serious: Yes (Hospitalization)
  Sender: FDA-Public Use
  Company Number: PHHO2011SE05702

PATIENT
  Age: 75 Year
  Sex: Female
  Weight: 76.5 kg

DRUGS (7)
  1. ALISKIREN [Suspect]
     Indication: CARDIOVASCULAR DISORDER
     Dosage: 300 MG, UNK
     Dates: start: 20110302, end: 20110329
  2. ESIDREX [Suspect]
     Indication: CARDIOVASCULAR DISORDER
     Dosage: 25 MG, UNK
     Dates: start: 20110302, end: 20110329
  3. AMLODIPINE [Concomitant]
     Dosage: 5 MG, UNK
  4. ENALAPRIL [Concomitant]
     Dosage: 20 MG, UNK
  5. METOPROLOL [Concomitant]
  6. ANTICOAGULANTS [Concomitant]
     Route: 048
  7. SIMVASTATIN [Concomitant]

REACTIONS (1)
  - Pneumonia [Recovered/Resolved]
